FAERS Safety Report 4569190-4 (Version None)
Quarter: 2005Q1

REPORT INFORMATION
  Report Type: 
  Country: None (occurrence: None)
  Receive Date: 20050126
  Receipt Date: 20050126
  Transmission Date: 20050727
  Serious: Yes (Other)
  Sender: FDA-Public Use
  Company Number: None

PATIENT
  Age: 75 Year
  Sex: Male
  Weight: 79.4 kg

DRUGS (2)
  1. MORPHINE SULFATE [Suspect]
     Indication: PAIN
     Dosage: 2MG, EVERY 2 SUBCUTANEOUS
     Route: 058
     Dates: start: 20040511, end: 20040519
  2. MORPHINE [Concomitant]

REACTIONS (1)
  - DELIRIUM [None]
